FAERS Safety Report 15286245 (Version 1)
Quarter: 2018Q3

REPORT INFORMATION
  Report Type: Spontaneous
  Country: FR (occurrence: FR)
  Receive Date: 20180816
  Receipt Date: 20180816
  Transmission Date: 20181010
  Serious: Yes (Other)
  Sender: FDA-Public Use
  Company Number: FR-009507513-1808FRA002420

PATIENT
  Age: 2 Month
  Sex: Female

DRUGS (2)
  1. HYDROCORTISONE. [Suspect]
     Active Substance: HYDROCORTISONE
     Indication: BRONCHOPULMONARY DYSPLASIA
     Dosage: UNK
     Route: 042
     Dates: start: 20170913, end: 20170921
  2. CELESTENE 4MG/1ML [Suspect]
     Active Substance: BETAMETHASONE
     Indication: BRONCHOPULMONARY DYSPLASIA
     Dosage: UNK
     Route: 042
     Dates: start: 20170921, end: 20170926

REACTIONS (1)
  - Ventricular hypertrophy [Recovered/Resolved]

NARRATIVE: CASE EVENT DATE: 20171110
